FAERS Safety Report 4324657-9 (Version None)
Quarter: 2004Q1

REPORT INFORMATION
  Report Type: 
  Country: None (occurrence: None)
  Receive Date: 20040322
  Receipt Date: 20040309
  Transmission Date: 20041129
  Serious: Yes (Disabling)
  Sender: FDA-Public Use
  Company Number: DK-JNJFOC-20040200430

PATIENT
  Age: 47 Year
  Sex: Male

DRUGS (7)
  1. REMICADE [Suspect]
     Indication: POLYARTHRITIS
     Dosage: 230 MG, 1 IN 8 WEEK, INTRAVENOUS
     Route: 042
     Dates: start: 20030519
  2. DIPROSPAN (DIPROSPAN) INJECTION [Suspect]
     Indication: RHEUMATOID ARTHRITIS
     Dosage: 2 ML, 1 IN 1 DAY, INTRA-MUSCULAR
     Route: 030
     Dates: start: 20030226, end: 20030226
  3. DIPROSPAN (DIPROSPAN) INJECTION [Suspect]
     Indication: RHEUMATOID ARTHRITIS
     Dosage: 2 ML, 1 IN 1 DAY, INTRA-MUSCULAR
     Route: 030
     Dates: start: 20010601
  4. TRADOLAN (TRAMADOL HYDROCHLORIDE) [Concomitant]
  5. METHOTREXATE [Concomitant]
  6. VIOXX [Concomitant]
  7. FOLIC ACID [Concomitant]

REACTIONS (1)
  - OSTEONECROSIS [None]
